FAERS Safety Report 8657755 (Version 2)
Quarter: 2012Q4

REPORT INFORMATION
  Report Type: 
  Country: US (occurrence: US)
  Receive Date: 20120710
  Receipt Date: 20120901
  Transmission Date: 20130627
  Serious: No
  Sender: FDA-Public Use
  Company Number: US-009507513-1207USA000326

PATIENT

DRUGS (1)
  1. NUVARING [Suspect]
     Dosage: UNK UNK, qd
     Route: 067

REACTIONS (1)
  - Device breakage [Recovered/Resolved]
